FAERS Safety Report 4831774-3 (Version None)
Quarter: 2005Q4

REPORT INFORMATION
  Report Type: 
  Country: None (occurrence: None)
  Receive Date: 20051118
  Receipt Date: 20051104
  Transmission Date: 20060501
  Serious: Yes (Life-Threatening, Hospitalization)
  Sender: FDA-Public Use
  Company Number: DE-AMGEN-UK156867

PATIENT
  Sex: Female
  Weight: 80 kg

DRUGS (3)
  1. KINERET [Suspect]
     Indication: RHEUMATOID ARTHRITIS
     Route: 058
     Dates: start: 20020806, end: 20050420
  2. METHOTREXATE [Suspect]
     Route: 048
     Dates: start: 20020806, end: 20050420
  3. PREDNISOLONE [Concomitant]
     Route: 048
     Dates: start: 20040427

REACTIONS (6)
  - CATARACT OPERATION [None]
  - HERPES ZOSTER [None]
  - MENINGOENCEPHALITIS HERPETIC [None]
  - NECK PAIN [None]
  - SHOULDER PAIN [None]
  - SOMNOLENCE [None]
